FAERS Safety Report 12012357 (Version 5)
Quarter: 2016Q3

REPORT INFORMATION
  Report Type: Spontaneous
  Country: US (occurrence: US)
  Receive Date: 20160205
  Receipt Date: 20160708
  Transmission Date: 20161109
  Serious: Yes (Hospitalization, Other)
  Sender: FDA-Public Use
  Company Number: US-GLAXOSMITHKLINE-US2016016762

PATIENT
  Age: 51 Year
  Sex: Male

DRUGS (18)
  1. ADVAIR DISKUS [Suspect]
     Active Substance: FLUTICASONE PROPIONATE\SALMETEROL XINAFOATE
     Indication: CHRONIC OBSTRUCTIVE PULMONARY DISEASE
     Dosage: 1 PUFF(S), BID (250/50)
     Dates: start: 2014
  2. QUETIAPINE. [Concomitant]
     Active Substance: QUETIAPINE
  3. MONTELUKAST [Concomitant]
     Active Substance: MONTELUKAST SODIUM
  4. ADVAIR DISKUS [Suspect]
     Active Substance: FLUTICASONE PROPIONATE\SALMETEROL XINAFOATE
     Indication: ASTHMA
     Dosage: 500/50 MCG, UNK, U
  5. ALPRAZOLAM. [Concomitant]
     Active Substance: ALPRAZOLAM
  6. SEROQUEL [Concomitant]
     Active Substance: QUETIAPINE FUMARATE
  7. BACLOFEN. [Concomitant]
     Active Substance: BACLOFEN
  8. OXYCONTIN [Concomitant]
     Active Substance: OXYCODONE HYDROCHLORIDE
  9. OXYCODONE HYDROCHLORIDE. [Concomitant]
     Active Substance: OXYCODONE HYDROCHLORIDE
  10. TEMAZEPAM. [Concomitant]
     Active Substance: TEMAZEPAM
  11. ADVAIR DISKUS [Suspect]
     Active Substance: FLUTICASONE PROPIONATE\SALMETEROL XINAFOATE
     Dosage: 500/50 MCG 1 PUFF ONCE DAILY
     Route: 055
  12. XARELTO [Concomitant]
     Active Substance: RIVAROXABAN
  13. IPRATROPIUM BROMIDE. [Concomitant]
     Active Substance: IPRATROPIUM BROMIDE
  14. SPIRIVA [Concomitant]
     Active Substance: TIOTROPIUM BROMIDE MONOHYDRATE
  15. TOPAMAX [Concomitant]
     Active Substance: TOPIRAMATE
  16. OXYBUTYNIN [Concomitant]
     Active Substance: OXYBUTYNIN
  17. ALBUTEROL. [Concomitant]
     Active Substance: ALBUTEROL
  18. LAMOTRIGINE. [Concomitant]
     Active Substance: LAMOTRIGINE

REACTIONS (13)
  - Emergency care [Unknown]
  - Inappropriate schedule of drug administration [Unknown]
  - Thrombosis [Unknown]
  - Prostatomegaly [Unknown]
  - Prostatic operation [Recovered/Resolved]
  - Pulmonary thrombosis [Unknown]
  - Pneumonia [Recovered/Resolved]
  - Renal surgery [Recovered/Resolved]
  - Product label confusion [Unknown]
  - Urinary retention [Recovered/Resolved]
  - Bladder neck obstruction [Recovered/Resolved]
  - Underdose [Unknown]
  - Bladder catheterisation [Recovered/Resolved]

NARRATIVE: CASE EVENT DATE: 201310
